FAERS Safety Report 19984083 (Version 1)
Quarter: 2021Q4

REPORT INFORMATION
  Report Type: Spontaneous
  Country: US (occurrence: US)
  Receive Date: 20211022
  Receipt Date: 20211022
  Transmission Date: 20220303
  Serious: Yes (Death, Hospitalization)
  Sender: FDA-Public Use
  Company Number: US-JNJFOC-20211020501

PATIENT
  Age: 18 Year
  Sex: Female
  Weight: 79 kg

DRUGS (2)
  1. ACETAMINOPHEN [Suspect]
     Active Substance: ACETAMINOPHEN
     Indication: Suicide attempt
     Dosage: ACETAMINOPHEN TOTAL DOSE OF 10000 MG ONCE
     Route: 048
     Dates: start: 20011124, end: 20011124
  2. INSULIN NOS [Concomitant]
     Active Substance: INSULIN NOS
     Indication: Type 1 diabetes mellitus
     Route: 065

REACTIONS (9)
  - Completed suicide [Fatal]
  - Brain herniation [Fatal]
  - Arrhythmia [Fatal]
  - Lung infiltration [Fatal]
  - Fungal infection [Fatal]
  - Acute hepatic failure [Fatal]
  - Acute kidney injury [Fatal]
  - Brain oedema [Fatal]
  - Intentional overdose [Fatal]
